FAERS Safety Report 7383759 (Version 3)
Quarter: 2013Q3

REPORT INFORMATION
  Report Type: Spontaneous
  Country: JP (occurrence: JP)
  Receive Date: 20100511
  Receipt Date: 20130823
  Transmission Date: 20140515
  Serious: Yes (Hospitalization, Other)
  Sender: FDA-Public Use
  Company Number: PHHY2010JP23032

PATIENT
  Age: 60 Year
  Sex: Female

DRUGS (9)
  1. NEORAL [Suspect]
     Indication: DERMATOMYOSITIS
     Dosage: 100 MG, UNK
     Route: 048
     Dates: start: 20091218, end: 20100301
  2. BAKTAR [Interacting]
     Indication: PNEUMOCYSTIS JIROVECII PNEUMONIA
     Dosage: 12 DF, UNK
     Route: 048
  3. BAKTAR [Interacting]
     Indication: ANTIFUNGAL PROPHYLAXIS
     Dosage: 3 DF, UNK
     Route: 048
  4. FUNGUARD [Interacting]
     Indication: FUNGAL INFECTION
     Dosage: 100 MG/DAY
     Route: 041
     Dates: end: 20100310
  5. DENOSINE [Concomitant]
     Indication: CYTOMEGALOVIRUS INFECTION
     Dosage: 400 MG/DAY
     Route: 041
     Dates: start: 20100128, end: 20100215
  6. PREDONINE [Concomitant]
     Indication: DERMATOMYOSITIS
     Dosage: 60 MG/DAY
     Route: 048
     Dates: start: 20091216, end: 20100124
  7. PREDONINE [Concomitant]
     Dosage: 50MG/DAY
     Route: 048
     Dates: start: 20100124
  8. PREDONINE [Concomitant]
     Dosage: 40 MG/DAY
     Route: 048
  9. METHYLPREDNISOLONE [Concomitant]
     Dosage: 1000 MG/DAY
     Dates: start: 20100222, end: 20100224

REACTIONS (7)
  - Cytomegalovirus infection [Unknown]
  - Candida infection [Recovered/Resolved]
  - Pneumocystis jirovecii pneumonia [Recovering/Resolving]
  - Respiratory failure [Unknown]
  - Immunosuppressant drug level increased [Recovered/Resolved]
  - Interstitial lung disease [Recovering/Resolving]
  - Drug interaction [Unknown]
